FAERS Safety Report 6944675-1 (Version None)
Quarter: 2010Q3

REPORT INFORMATION
  Report Type: 
  Country: None (occurrence: None)
  Receive Date: 20100827
  Receipt Date: 20100823
  Transmission Date: 20110219
  Serious: Yes (Death)
  Sender: FDA-Public Use
  Company Number: JP-ASTRAZENECA-2009AP01022

PATIENT
  Age: 60 Year
  Sex: Female
  Weight: 61 kg

DRUGS (12)
  1. IRESSA [Suspect]
     Indication: LUNG ADENOCARCINOMA
     Route: 048
     Dates: start: 20081205, end: 20081207
  2. IRESSA [Suspect]
     Route: 048
     Dates: start: 20081212, end: 20090107
  3. CODEINE PHOSPHATE [Concomitant]
     Indication: COUGH
     Route: 048
     Dates: start: 20081031, end: 20090109
  4. HEAVY MAGNESIUM OXIDE [Concomitant]
     Indication: CONSTIPATION
     Route: 048
     Dates: start: 20081031, end: 20090109
  5. MUCOSTA [Concomitant]
     Indication: GASTRITIS
     Route: 048
     Dates: start: 20081031, end: 20090109
  6. DUROTEP [Concomitant]
     Indication: PAIN
     Route: 062
     Dates: start: 20081114, end: 20090118
  7. OPSO [Concomitant]
     Indication: PAIN
     Route: 048
     Dates: start: 20081114, end: 20090118
  8. LENDORMIN D [Concomitant]
     Indication: INSOMNIA
     Route: 048
     Dates: start: 20081209, end: 20090118
  9. TOCLASE [Concomitant]
     Indication: COUGH
     Route: 048
     Dates: start: 20081220, end: 20090109
  10. RINDERON [Concomitant]
     Dosage: DOSE UNKNOWN
     Route: 065
  11. ALLOID G [Concomitant]
     Dosage: DOSE UNKNOWN
     Route: 048
  12. MEIACT [Concomitant]
     Dosage: DOSE UNKNOWN
     Route: 048

REACTIONS (1)
  - LUNG DISORDER [None]
